FAERS Safety Report 24125393 (Version 1)
Quarter: 2024Q3

REPORT INFORMATION
  Report Type: Report from Study
  Country: CA (occurrence: None)
  Receive Date: 20240723
  Receipt Date: 20240723
  Transmission Date: 20241016
  Serious: Yes (Other)
  Sender: ORION
  Company Number: CA-PFIZER INC-202400218577

PATIENT
  Age: 14 Year
  Sex: Female

DRUGS (15)
  1. METHOTREXATE [Suspect]
     Active Substance: METHOTREXATE
     Indication: Product used for unknown indication
  2. METHOTREXATE [Suspect]
     Active Substance: METHOTREXATE
  3. METHOTREXATE [Suspect]
     Active Substance: METHOTREXATE
  4. MYCOPHENOLATE MOFETIL [Suspect]
     Active Substance: MYCOPHENOLATE MOFETIL
     Indication: Vogt-Koyanagi-Harada disease
  5. ACTEMRA [Suspect]
     Active Substance: TOCILIZUMAB
     Indication: Vogt-Koyanagi-Harada disease
     Dosage: FREQUENCY: 1 CYCLICAL
  6. BETAMETHASONE DIPROPIONATE\CLOTRIMAZOLE [Concomitant]
     Active Substance: BETAMETHASONE DIPROPIONATE\CLOTRIMAZOLE
  7. CLOBETASOL PROPIONATE [Concomitant]
     Active Substance: CLOBETASOL PROPIONATE
  8. CYCLOGYL [Concomitant]
     Active Substance: CYCLOPENTOLATE HYDROCHLORIDE
  9. FOLIC ACID [Concomitant]
     Active Substance: FOLIC ACID
  10. IBUPROFEN [Concomitant]
     Active Substance: IBUPROFEN
  11. DIETARY SUPPLEMENT [Concomitant]
     Active Substance: DIETARY SUPPLEMENT
  12. LATANOPROST [Concomitant]
     Active Substance: LATANOPROST
  13. PREDNISONE [Concomitant]
     Active Substance: PREDNISONE
  14. CETIRIZINE HYDROCHLORIDE [Concomitant]
     Active Substance: CETIRIZINE HYDROCHLORIDE
  15. SALICYLIC ACID [Concomitant]
     Active Substance: SALICYLIC ACID

REACTIONS (12)
  - Drug intolerance [Unknown]
  - Anxiety [Unknown]
  - Depression [Unknown]
  - Eye disorder [Unknown]
  - Eye pain [Unknown]
  - Feeling abnormal [Unknown]
  - Muscle spasms [Unknown]
  - Psoriasis [Unknown]
  - Tooth disorder [Unknown]
  - Uveitis [Unknown]
  - Vogt-Koyanagi-Harada disease [Unknown]
  - Off label use [Unknown]
